FAERS Safety Report 17033751 (Version 1)
Quarter: 2019Q4

REPORT INFORMATION
  Report Type: Spontaneous
  Country: BE (occurrence: BE)
  Receive Date: 20191114
  Receipt Date: 20191114
  Transmission Date: 20200122
  Serious: Yes (Other)
  Sender: FDA-Public Use
  Company Number: BE-JNJFOC-20191111088

PATIENT

DRUGS (1)
  1. SYMTUZA [Suspect]
     Active Substance: COBICISTAT\DARUNAVIR\EMTRICITABINE\TENOFOVIR ALAFENAMIDE
     Indication: HIV INFECTION
     Route: 048
     Dates: start: 20180404, end: 20190405

REACTIONS (1)
  - Gastrointestinal toxicity [Unknown]
